FAERS Safety Report 5027914-6 (Version None)
Quarter: 2006Q2

REPORT INFORMATION
  Report Type: 
  Country: None (occurrence: None)
  Receive Date: 20060616
  Receipt Date: 20060612
  Transmission Date: 20061013
  Serious: Yes (Hospitalization)
  Sender: FDA-Public Use
  Company Number: US-MERCK-0606USA02243

PATIENT
  Age: 61 Year
  Sex: Male

DRUGS (7)
  1. ZETIA [Suspect]
     Indication: BLOOD CHOLESTEROL INCREASED
     Route: 048
     Dates: end: 20060501
  2. WARFARIN [Concomitant]
     Route: 065
  3. [THERAPY UNSPECIFIED] [Concomitant]
     Route: 065
  4. FLOMAX (MORNIFLUMATE) [Concomitant]
     Route: 065
  5. AVODART [Concomitant]
     Route: 065
  6. MELATONIN [Concomitant]
     Route: 065
  7. AMBIEN [Concomitant]
     Route: 065

REACTIONS (3)
  - BACK PAIN [None]
  - FATIGUE [None]
  - MUSCULOSKELETAL STIFFNESS [None]
